FAERS Safety Report 18435168 (Version 3)
Quarter: 2020Q4

REPORT INFORMATION
  Report Type: Spontaneous
  Country: PL (occurrence: PL)
  Receive Date: 20201028
  Receipt Date: 20201118
  Transmission Date: 20210114
  Serious: Yes (Hospitalization, Other)
  Sender: FDA-Public Use
  Company Number: PL-ACCORD-206250

PATIENT
  Age: 65 Year
  Sex: Male

DRUGS (4)
  1. CISPLATIN. [Suspect]
     Active Substance: CISPLATIN
     Indication: NASAL SINUS CANCER
     Dosage: 40 MG/M2, 2 SERIES OF CHEMOTHERAPY,
     Route: 065
  2. PACLITAXEL/PACLITAXEL LIPOSOME [Suspect]
     Active Substance: PACLITAXEL
     Indication: NASAL SINUS CANCER
     Dosage: STRENGTH: 45 MG/M2 MILLIGRAM(S)/SQ. METER, 45 MG/M2, WEEKLY
     Route: 065
  3. CARBOPLATIN. [Suspect]
     Active Substance: CARBOPLATIN
     Indication: NASAL SINUS CANCER
     Dosage: ADMINISTERED WEEKLY, AUC: 1.5
     Route: 065
  4. CISPLATIN. [Suspect]
     Active Substance: CISPLATIN
     Indication: NASAL SINUS CANCER
     Dosage: 100 MG/M2, 4 SERIES OF INITIAL CHEMOTHERAPY
     Route: 065

REACTIONS (4)
  - Conductive deafness [Unknown]
  - Radiation mucositis [Unknown]
  - Off label use [Unknown]
  - Dysphagia [Unknown]
